FAERS Safety Report 5145224-3 (Version None)
Quarter: 2006Q4

REPORT INFORMATION
  Report Type: 
  Country: None (occurrence: None)
  Receive Date: 20061107
  Receipt Date: 20061026
  Transmission Date: 20070319
  Serious: Yes (Hospitalization)
  Sender: FDA-Public Use
  Company Number: AU-ROCHE-468538

PATIENT
  Age: 52 Year
  Sex: Male

DRUGS (6)
  1. DACLIZUMAB [Suspect]
     Dosage: 2 MG/KG AS PER PROTOCOL. ROUTE OF ADMINISTRATION - INFUSION.
     Route: 042
     Dates: start: 20040516, end: 20040516
  2. DACLIZUMAB [Suspect]
     Dosage: 1MG/KG EVERY TWO WEEKS FOR FOUR DOSES, ACCORDING TO PROTOCOL.
     Route: 042
  3. MYCOPHENOLATE MOFETIL [Suspect]
     Route: 048
     Dates: start: 20040517
  4. PREDNISONE TAB [Suspect]
     Route: 048
     Dates: start: 20051108
  5. SIROLIMUS [Suspect]
     Route: 065
  6. TACROLIMUS [Suspect]
     Indication: DRUG USE FOR UNKNOWN INDICATION
     Route: 065
     Dates: start: 20060828

REACTIONS (1)
  - GASTROENTERITIS [None]
